FAERS Safety Report 10179303 (Version 8)
Quarter: 2015Q2

REPORT INFORMATION
  Report Type: Spontaneous
  Country: US (occurrence: US)
  Receive Date: 20140519
  Receipt Date: 20150429
  Transmission Date: 20150821
  Serious: Yes (Hospitalization, Other)
  Sender: FDA-Public Use
  Company Number: US-009507513-1405USA004460

PATIENT
  Sex: Female
  Weight: 57.6 kg

DRUGS (4)
  1. ALENDRONATE SODIUM. [Suspect]
     Active Substance: ALENDRONATE SODIUM
     Indication: OSTEOPOROSIS
     Dosage: 10 MG, QD
     Route: 048
     Dates: start: 19961227, end: 20020327
  2. FOSAMAX [Suspect]
     Active Substance: ALENDRONATE SODIUM
     Dosage: 10 MG, QD
     Route: 048
  3. FOSAMAX [Suspect]
     Active Substance: ALENDRONATE SODIUM
     Dosage: 70 MG, QW
     Route: 048
  4. FOSAMAX [Suspect]
     Active Substance: ALENDRONATE SODIUM
     Indication: OSTEOPOROSIS
     Dosage: 70 MG, QD
     Route: 048

REACTIONS (45)
  - Open reduction of fracture [Unknown]
  - Breast cancer metastatic [Unknown]
  - Osteoarthritis [Unknown]
  - Soft tissue disorder [Unknown]
  - Malignant neoplasm progression [Unknown]
  - Oesophageal stenosis [Unknown]
  - Femur fracture [Unknown]
  - Intramedullary rod insertion [Unknown]
  - Lung adenocarcinoma metastatic [Unknown]
  - Radiotherapy to breast [Unknown]
  - Bone scan abnormal [Unknown]
  - Chemotherapy [Unknown]
  - Low turnover osteopathy [Unknown]
  - Hypercholesterolaemia [Unknown]
  - Weight increased [Unknown]
  - Fall [Unknown]
  - Upper limb fracture [Recovered/Resolved]
  - Ligament sprain [Unknown]
  - Ovarian cyst [Unknown]
  - Musculoskeletal pain [Unknown]
  - Weight increased [Unknown]
  - Fractured sacrum [Unknown]
  - Stress [Unknown]
  - Exostosis [Unknown]
  - Retinal melanoma [Unknown]
  - Anaemia [Unknown]
  - Spinal osteoarthritis [Unknown]
  - Uterine leiomyoma [Unknown]
  - Gastrooesophageal reflux disease [Unknown]
  - Radius fracture [Unknown]
  - Anaemia postoperative [Unknown]
  - Intervertebral disc degeneration [Unknown]
  - Scoliosis [Unknown]
  - Accident [Unknown]
  - Inappropriate schedule of drug administration [Unknown]
  - Metastases to bone [Unknown]
  - Breast reconstruction [Unknown]
  - Post-traumatic stress disorder [Unknown]
  - Depression [Unknown]
  - Blood pressure systolic increased [Unknown]
  - Retinal detachment [Unknown]
  - Weight decreased [Unknown]
  - Blood potassium decreased [Unknown]
  - Tonsillectomy [Unknown]
  - Bone cyst [Unknown]

NARRATIVE: CASE EVENT DATE: 20010312
